FAERS Safety Report 10700327 (Version 1)
Quarter: 2015Q1

REPORT INFORMATION
  Report Type: Spontaneous
  Country: IT (occurrence: None)
  Receive Date: 20150107
  Receipt Date: 20150107
  Transmission Date: 20150721
  Serious: Yes (Hospitalization)
  Sender: FDA-Public Use
  Company Number: FK201406517

PATIENT
  Age: 61 Year
  Sex: Male

DRUGS (3)
  1. CONTRAMAL [Concomitant]
     Active Substance: TRAMADOL HYDROCHLORIDE
  2. HUMALOG [Concomitant]
     Active Substance: INSULIN LISPRO
  3. LEVOFLOXACIN. [Suspect]
     Active Substance: LEVOFLOXACIN
     Indication: PNEUMONIA
     Route: 042
     Dates: start: 20141219, end: 20141219

REACTIONS (3)
  - Hypotension [None]
  - Hyperhidrosis [None]
  - Presyncope [None]

NARRATIVE: CASE EVENT DATE: 20141219
